FAERS Safety Report 6413586-2 (Version None)
Quarter: 2009Q4

REPORT INFORMATION
  Report Type: 
  Country: None (occurrence: None)
  Receive Date: 20091026
  Receipt Date: 20091020
  Transmission Date: 20100525
  Serious: Yes (Death, Other)
  Sender: FDA-Public Use
  Company Number: US-GILEAD-2009-0024234

PATIENT
  Sex: Male

DRUGS (7)
  1. LETAIRIS [Suspect]
     Indication: PULMONARY ARTERIAL HYPERTENSION
     Route: 048
     Dates: start: 20090227, end: 20090911
  2. SPIRONOLACTONE [Concomitant]
  3. ADVAIR DISKUS 100/50 [Concomitant]
  4. ALBUTEROL [Concomitant]
  5. DICYCLOMINE [Concomitant]
  6. NEXIUM [Concomitant]
  7. PREVACID [Concomitant]

REACTIONS (2)
  - DEATH [None]
  - DRUG INEFFECTIVE [None]
